FAERS Safety Report 13841227 (Version 1)
Quarter: 2017Q3

REPORT INFORMATION
  Report Type: Report from Study
  Country: IT (occurrence: IT)
  Receive Date: 20170807
  Receipt Date: 20170807
  Transmission Date: 20171127
  Serious: Yes (Other)
  Sender: FDA-Public Use
  Company Number: IT-ALLERGAN-1729885US

PATIENT
  Age: 83 Year
  Sex: Male
  Weight: 75 kg

DRUGS (10)
  1. ALLOPURINOL. [Concomitant]
     Active Substance: ALLOPURINOL
  2. FUROSEMIDE. [Concomitant]
     Active Substance: FUROSEMIDE
  3. ASENAPINE MALEATE - BP [Suspect]
     Active Substance: ASENAPINE MALEATE
     Indication: DEMENTIA
     Dosage: 5 MG, QD
     Route: 048
     Dates: start: 201612
  4. CILOSTAZOL. [Interacting]
     Active Substance: CILOSTAZOL
     Indication: INTERMITTENT CLAUDICATION
     Dosage: 100 MG, QD
     Route: 048
     Dates: start: 201605
  5. BISOPROLOL FUMARATE. [Concomitant]
     Active Substance: BISOPROLOL FUMARATE
  6. ASPIRIN. [Concomitant]
     Active Substance: ASPIRIN
  7. VALPROIC ACID. [Concomitant]
     Active Substance: VALPROIC ACID
  8. LANSOPRAZOLE. [Interacting]
     Active Substance: LANSOPRAZOLE
     Indication: PROPHYLAXIS AGAINST GASTROINTESTINAL ULCER
     Dosage: 15 MG, QD
     Route: 048
     Dates: start: 20170510
  9. RAMIPRIL. [Concomitant]
     Active Substance: RAMIPRIL
  10. ARIXTRA [Concomitant]
     Active Substance: FONDAPARINUX SODIUM

REACTIONS (2)
  - Electrocardiogram QT prolonged [Recovering/Resolving]
  - Drug interaction [Unknown]

NARRATIVE: CASE EVENT DATE: 20170511
